FAERS Safety Report 8044242-5 (Version None)
Quarter: 2012Q1

REPORT INFORMATION
  Report Type: 
  Country: None (occurrence: None)
  Receive Date: 20120113
  Receipt Date: 20120106
  Transmission Date: 20120608
  Serious: Yes (Hospitalization)
  Sender: FDA-Public Use
  Company Number: BR-US-EMD SERONO, INC.-7090407

PATIENT
  Sex: Male

DRUGS (5)
  1. MANTIDAN [Concomitant]
     Indication: PRODUCT USED FOR UNKNOWN INDICATION
  2. REBIF [Suspect]
     Indication: SECONDARY PROGRESSIVE MULTIPLE SCLEROSIS
     Dates: start: 20020429
  3. FLUOXETINE [Concomitant]
     Indication: PRODUCT USED FOR UNKNOWN INDICATION
  4. UNKNOWN [Concomitant]
     Indication: BLADDER DISORDER
  5. ENALAPRIL MALEATE [Concomitant]
     Indication: PRODUCT USED FOR UNKNOWN INDICATION

REACTIONS (24)
  - MALAISE [None]
  - DYSGRAPHIA [None]
  - OFF LABEL USE [None]
  - MOBILITY DECREASED [None]
  - INJECTION SITE NODULE [None]
  - MUSCULAR WEAKNESS [None]
  - OEDEMA PERIPHERAL [None]
  - WEIGHT DECREASED [None]
  - URINARY INCONTINENCE [None]
  - PARAESTHESIA [None]
  - BALANCE DISORDER [None]
  - DEPRESSION [None]
  - ASTHENIA [None]
  - GAIT DISTURBANCE [None]
  - CHOKING [None]
  - DYSPHONIA [None]
  - FALL [None]
  - URINARY RETENTION [None]
  - INJECTION SITE FIBROSIS [None]
  - INJECTION SITE ERYTHEMA [None]
  - BLOOD PRESSURE INCREASED [None]
  - FEELING ABNORMAL [None]
  - INJECTION SITE HAEMATOMA [None]
  - FATIGUE [None]
